FAERS Safety Report 8218641-2 (Version None)
Quarter: 2012Q1

REPORT INFORMATION
  Report Type: 
  Country: None (occurrence: None)
  Receive Date: 20120319
  Receipt Date: 20120305
  Transmission Date: 20120608
  Serious: Yes (Hospitalization, Other)
  Sender: FDA-Public Use
  Company Number: PHFR2011GB006773

PATIENT
  Sex: Female

DRUGS (6)
  1. CLOZARIL [Suspect]
     Dosage: 350 MG, (100 MG AT AM AND 250 MG AT PM)
     Route: 048
     Dates: end: 20120307
  2. DEPALEPT [Concomitant]
     Dosage: 200 UKN, QD
     Dates: start: 20111220
  3. CLOZARIL [Suspect]
     Indication: SCHIZOPHRENIA, RESIDUAL TYPE
     Dosage: 150 MG, DAILY
     Route: 048
     Dates: start: 20111103
  4. HALOPERIDOL [Concomitant]
     Dosage: 2.5 UKN, UNK
  5. CLOZARIL [Suspect]
     Dosage: 200 MG, DAILY
     Route: 048
  6. PROCYCLIDINE HYDROCHLORIDE 2MG TAB [Concomitant]

REACTIONS (11)
  - HYPOTENSION [None]
  - DRUG HYPERSENSITIVITY [None]
  - CONVERSION DISORDER [None]
  - TREMOR [None]
  - IDIOPATHIC GENERALISED EPILEPSY [None]
  - CIRCULATORY COLLAPSE [None]
  - HEART RATE INCREASED [None]
  - DROP ATTACKS [None]
  - DYSKINESIA [None]
  - MYOCLONUS [None]
  - MUSCULAR WEAKNESS [None]
